FAERS Safety Report 7979499-X (Version None)
Quarter: 2011Q4

REPORT INFORMATION
  Report Type: 
  Country: None (occurrence: None)
  Receive Date: 20111214
  Receipt Date: 20111208
  Transmission Date: 20120403
  Serious: Yes (Death)
  Sender: FDA-Public Use
  Company Number: PHHY2011CA106578

PATIENT
  Sex: Female

DRUGS (3)
  1. ZOLEDRONOC ACID [Suspect]
     Indication: OSTEOPOROSIS
     Dosage: UNK
     Route: 042
     Dates: start: 20090121
  2. ZOLEDRONOC ACID [Suspect]
     Dosage: UNK
     Route: 042
     Dates: start: 20110304
  3. ZOLEDRONOC ACID [Suspect]
     Dosage: UNK
     Route: 042
     Dates: start: 20100115

REACTIONS (6)
  - CROHN'S DISEASE [None]
  - INTERSTITIAL LUNG DISEASE [None]
  - IMMUNE SYSTEM DISORDER [None]
  - PEPTIC ULCER [None]
  - HAEMOSIDEROSIS [None]
  - RHEUMATOID ARTHRITIS [None]
